FAERS Safety Report 10207567 (Version 1)
Quarter: 2014Q2

REPORT INFORMATION
  Report Type: Spontaneous
  Country: US (occurrence: None)
  Receive Date: 20140529
  Receipt Date: 20140529
  Transmission Date: 20141212
  Serious: No
  Sender: FDA-Public Use
  Company Number: None

PATIENT
  Age: 8 Year
  Sex: Female
  Weight: 36.29 kg

DRUGS (1)
  1. METHYLPHENIDATE [Suspect]
     Indication: ATTENTION DEFICIT/HYPERACTIVITY DISORDER
     Dosage: 1 PER DAY ONCE DAILY TAKEN BY MOUTH
     Route: 048

REACTIONS (5)
  - Aggression [None]
  - Depression [None]
  - Anxiety [None]
  - Drug ineffective [None]
  - Product substitution issue [None]
